FAERS Safety Report 8386693-5 (Version None)
Quarter: 2012Q2

REPORT INFORMATION
  Report Type: 
  Country: None (occurrence: None)
  Receive Date: 20120523
  Receipt Date: 20120523
  Transmission Date: 20120825
  Serious: No
  Sender: FDA-Public Use
  Company Number: None

PATIENT
  Age: 66 Year
  Sex: Female
  Weight: 54.4316 kg

DRUGS (1)
  1. ZANTAC [Suspect]
     Indication: GASTROOESOPHAGEAL REFLUX DISEASE
     Dosage: ZANTAC 150MG TWICE A DAY PO
     Route: 048
     Dates: start: 20001205, end: 20120504

REACTIONS (3)
  - MIDDLE INSOMNIA [None]
  - PRODUCT SUBSTITUTION ISSUE [None]
  - DRUG INEFFECTIVE [None]
